FAERS Safety Report 9700059 (Version 2)
Quarter: 2013Q4

REPORT INFORMATION
  Report Type: Spontaneous
  Country: US (occurrence: US)
  Receive Date: 20131121
  Receipt Date: 20131121
  Transmission Date: 20140711
  Serious: Yes (Hospitalization)
  Sender: FDA-Public Use
  Company Number: US-ROCHE-1240065

PATIENT
  Age: 57 Year
  Sex: Female

DRUGS (6)
  1. PEGASYS [Suspect]
     Indication: CHRONIC HEPATITIS C
     Route: 058
     Dates: start: 20130511
  2. COPEGUS [Suspect]
     Indication: CHRONIC HEPATITIS C
     Dosage: DIVIDED DOSE 600/400
     Route: 048
     Dates: start: 20130511, end: 20130608
  3. COPEGUS [Suspect]
     Dosage: BED TIME
     Route: 048
     Dates: start: 20130610
  4. INCIVEK [Suspect]
     Indication: CHRONIC HEPATITIS C
     Route: 065
     Dates: start: 20130511, end: 20130609
  5. INCIVEK [Suspect]
     Route: 065
     Dates: start: 20130610
  6. PROTONIX (UNITED STATES) [Concomitant]

REACTIONS (8)
  - Asthenia [Recovered/Resolved]
  - Malaise [Recovered/Resolved]
  - Prerenal failure [Unknown]
  - Tongue blistering [Unknown]
  - Abnormal dreams [Unknown]
  - Contusion [Unknown]
  - Nausea [Unknown]
  - Fatigue [Unknown]
